FAERS Safety Report 12581046 (Version 7)
Quarter: 2018Q2

REPORT INFORMATION
  Report Type: Report from Study
  Country: JP (occurrence: JP)
  Receive Date: 20160721
  Receipt Date: 20180615
  Transmission Date: 20180711
  Serious: Yes (Death, Hospitalization, Other)
  Sender: FDA-Public Use
  Company Number: JP-INCYTE CORPORATION-2016IN004348

PATIENT

DRUGS (12)
  1. FEBUXOSTAT. [Concomitant]
     Active Substance: FEBUXOSTAT
     Indication: PRODUCT USED FOR UNKNOWN INDICATION
     Dosage: 40 MG, QD
     Route: 048
  2. TORASEMIDE [Concomitant]
     Active Substance: TORSEMIDE
     Indication: PRODUCT USED FOR UNKNOWN INDICATION
     Dosage: 4 MG, QD
     Route: 048
  3. ESOMEPRAZOLE [Concomitant]
     Active Substance: ESOMEPRAZOLE
     Indication: PRODUCT USED FOR UNKNOWN INDICATION
     Dosage: 20 MG, QD
     Route: 048
  4. NESP [Concomitant]
     Active Substance: DARBEPOETIN ALFA
     Indication: PRODUCT USED FOR UNKNOWN INDICATION
     Dosage: 20 MG, QD
     Route: 065
  5. JAKAVI [Suspect]
     Active Substance: RUXOLITINIB
     Dosage: 5 MG, UNK
     Route: 048
  6. PREDNISOLONE. [Suspect]
     Active Substance: PREDNISOLONE
     Dosage: 5 MG, QD
     Route: 048
  7. NESP [Concomitant]
     Active Substance: DARBEPOETIN ALFA
     Dosage: 120 MG, QD
     Route: 065
     Dates: end: 20151225
  8. JAKAVI [Suspect]
     Active Substance: RUXOLITINIB
     Indication: MYELOFIBROSIS
     Dosage: 5 MG, BID
     Route: 048
     Dates: start: 20141009
  9. JAKAVI [Suspect]
     Active Substance: RUXOLITINIB
     Dosage: 5 MG, BID
     Route: 048
  10. PREDNISOLONE. [Suspect]
     Active Substance: PREDNISOLONE
     Dosage: 10 MG, UNK
     Route: 048
  11. PREDNISOLONE. [Suspect]
     Active Substance: PREDNISOLONE
     Indication: MYELOFIBROSIS
     Dosage: 5 MG, QD
     Route: 048
  12. FENTANYL CITRATE. [Concomitant]
     Active Substance: FENTANYL CITRATE
     Indication: PRODUCT USED FOR UNKNOWN INDICATION
     Dosage: 1 MG, QD
     Route: 062

REACTIONS (16)
  - Haemarthrosis [Unknown]
  - International normalised ratio increased [Unknown]
  - Staphylococcal infection [Fatal]
  - Platelet count decreased [Not Recovered/Not Resolved]
  - Feeling hot [Unknown]
  - Concomitant disease aggravated [Unknown]
  - Contusion [Unknown]
  - Necrotising fasciitis [Unknown]
  - Arthralgia [Unknown]
  - Acute kidney injury [Fatal]
  - Activated partial thromboplastin time prolonged [Unknown]
  - Blood lactate dehydrogenase increased [Unknown]
  - Sepsis [Unknown]
  - Peripheral swelling [Unknown]
  - Joint swelling [Unknown]
  - Inflammation [Unknown]

NARRATIVE: CASE EVENT DATE: 201512
